FAERS Safety Report 25048925 (Version 3)
Quarter: 2025Q2

REPORT INFORMATION
  Report Type: Spontaneous
  Country: JP (occurrence: JP)
  Receive Date: 20250307
  Receipt Date: 20250402
  Transmission Date: 20250717
  Serious: Yes (Hospitalization, Other)
  Sender: SANOFI AVENTIS
  Company Number: JP-SA-2025SA063981

PATIENT
  Age: 20 Year
  Sex: Female

DRUGS (2)
  1. INSULIN LISPRO [Suspect]
     Active Substance: INSULIN LISPRO
     Indication: Suicidal ideation
     Route: 058
  2. INSULIN DEGLUDEC [Concomitant]
     Active Substance: INSULIN DEGLUDEC
     Indication: Suicidal ideation
     Route: 065

REACTIONS (4)
  - Blood insulin increased [Unknown]
  - Hypokalaemia [Unknown]
  - Blood glucose decreased [Unknown]
  - Intentional overdose [Unknown]
